FAERS Safety Report 9375909 (Version 4)
Quarter: 2014Q1

REPORT INFORMATION
  Report Type: Spontaneous
  Country: US (occurrence: US)
  Receive Date: 20130628
  Receipt Date: 20140122
  Transmission Date: 20141002
  Serious: No
  Sender: FDA-Public Use
  Company Number: US-009507513-1306USA010490

PATIENT
  Age: 18 Year
  Sex: Female
  Weight: 73.16 kg

DRUGS (2)
  1. NEXPLANON [Suspect]
     Indication: CONTRACEPTION
     Dosage: 1 DF, UNK
     Route: 059
     Dates: start: 20130326, end: 20130712
  2. VITAMINS (UNSPECIFIED) [Concomitant]
     Indication: PREGNANCY
     Dosage: UNK, QD
     Route: 048
     Dates: start: 201307

REACTIONS (6)
  - Unintended pregnancy [Recovered/Resolved]
  - Medical device complication [Recovered/Resolved]
  - Device difficult to use [Recovered/Resolved]
  - Device dislocation [Recovered/Resolved]
  - Inappropriate schedule of drug administration [Unknown]
  - Streptococcal bacteraemia [Unknown]
